FAERS Safety Report 5043161-6 (Version None)
Quarter: 2006Q2

REPORT INFORMATION
  Report Type: 
  Country: None (occurrence: None)
  Receive Date: 20060628
  Receipt Date: 20060619
  Transmission Date: 20061013
  Serious: Yes (Hospitalization)
  Sender: FDA-Public Use
  Company Number: E2020-00169-SPO-JP

PATIENT
  Age: 83 Year
  Sex: Male

DRUGS (6)
  1. ARICEPT [Suspect]
     Indication: DEMENTIA ALZHEIMER'S TYPE
     Dosage: 5 MG, 1 IN 1 D, ORAL
     Route: 048
     Dates: start: 20060517, end: 20060614
  2. CARVEDILOL [Suspect]
     Dosage: 10 MG, 1 IN 1 D, ORAL
     Route: 048
     Dates: start: 19990101, end: 20060614
  3. BLOPRESS (CANDESARTAN CILEXETIL) [Concomitant]
  4. CONIEL (BENIDIPINE HYDROCHLORIDE) [Concomitant]
  5. ISOSORBIDE MONONITRATE [Concomitant]
  6. SINLESTAL (PROBUCOL) [Concomitant]

REACTIONS (8)
  - ATRIOVENTRICULAR BLOCK [None]
  - BRADYCARDIA [None]
  - DRUG INTERACTION [None]
  - ELECTROCARDIOGRAM ST SEGMENT DEPRESSION [None]
  - INCONTINENCE [None]
  - LOSS OF CONSCIOUSNESS [None]
  - SINOATRIAL BLOCK [None]
  - SYNCOPE [None]
